FAERS Safety Report 16673161 (Version 2)
Quarter: 2019Q3

REPORT INFORMATION
  Report Type: Report from Study
  Country: JP (occurrence: JP)
  Receive Date: 20190806
  Receipt Date: 20190923
  Transmission Date: 20191004
  Serious: Yes (Other)
  Sender: FDA-Public Use
  Company Number: PHJP2019JP010028

PATIENT
  Sex: Female

DRUGS (9)
  1. PREDNISOLONE. [Concomitant]
     Active Substance: PREDNISOLONE
     Dosage: 100 MG, UNK
     Route: 065
     Dates: start: 20180327
  2. PREDNISOLONE. [Concomitant]
     Active Substance: PREDNISOLONE
     Indication: PREMEDICATION
     Dosage: 100 MG, UNK
     Route: 065
     Dates: start: 20180320
  3. BRUFEN [Concomitant]
     Active Substance: IBUPROFEN
     Indication: PREMEDICATION
     Dosage: 100 MG, UNK
     Route: 065
     Dates: start: 20180320
  4. ARZERRA [Suspect]
     Active Substance: OFATUMUMAB
     Indication: CHRONIC LYMPHOCYTIC LEUKAEMIA
     Dosage: 300 MG, UNK
     Route: 041
     Dates: start: 20180320
  5. POLARAMINE [Concomitant]
     Active Substance: DEXCHLORPHENIRAMINE MALEATE
     Dosage: 2 MG, UNK
     Route: 065
     Dates: start: 20180327
  6. BRUFEN [Concomitant]
     Active Substance: IBUPROFEN
     Dosage: 100 MG, UNK
     Route: 065
     Dates: start: 20180327
  7. ARZERRA [Suspect]
     Active Substance: OFATUMUMAB
     Dosage: 2000 MG, UNK
     Route: 041
     Dates: start: 20180327
  8. ARZERRA [Suspect]
     Active Substance: OFATUMUMAB
     Dosage: UNK
     Route: 041
     Dates: start: 20180915, end: 20180915
  9. POLARAMINE [Concomitant]
     Active Substance: DEXCHLORPHENIRAMINE MALEATE
     Indication: PREMEDICATION
     Dosage: 2 MG, UNK
     Route: 065
     Dates: start: 20180320

REACTIONS (1)
  - Haematotoxicity [Recovered/Resolved]

NARRATIVE: CASE EVENT DATE: 20180417
